FAERS Safety Report 24669851 (Version 4)
Quarter: 2025Q1

REPORT INFORMATION
  Report Type: Spontaneous
  Country: PT (occurrence: PT)
  Receive Date: 20241127
  Receipt Date: 20250114
  Transmission Date: 20250409
  Serious: Yes (Hospitalization, Other)
  Sender: PFIZER
  Company Number: PT-002147023-PHHY2018PT173656

PATIENT
  Age: 54 Year
  Sex: Female

DRUGS (23)
  1. SPIRONOLACTONE [Suspect]
     Active Substance: SPIRONOLACTONE
     Dosage: 125 MG, 1X/DAY
     Route: 065
  2. METFORMIN HYDROCHLORIDE\VILDAGLIPTIN [Suspect]
     Active Substance: METFORMIN HYDROCHLORIDE\VILDAGLIPTIN
     Dosage: 1 DF, Q12H
     Route: 065
  3. RAMIPRIL [Suspect]
     Active Substance: RAMIPRIL
     Dosage: 5 MG, 1X/DAY
     Route: 048
  4. RAMIPRIL [Suspect]
     Active Substance: RAMIPRIL
     Dosage: 10 MG, 1X/DAY
     Route: 048
  5. VILDAGLIPTIN [Suspect]
     Active Substance: VILDAGLIPTIN
     Dosage: 5 MG, 2X/DAY (Q12H)
     Route: 065
  6. VILDAGLIPTIN [Suspect]
     Active Substance: VILDAGLIPTIN
     Dosage: 1 DF, 1X/DAY
     Route: 065
  7. ROSUVASTATIN [Suspect]
     Active Substance: ROSUVASTATIN
     Dosage: 10 MG, 1X/DAY
     Route: 048
  8. ROSUVASTATIN [Suspect]
     Active Substance: ROSUVASTATIN
     Dosage: 20 MG, 1X/DAY
     Route: 042
  9. ASPIRIN [Suspect]
     Active Substance: ASPIRIN
     Dosage: 100 MG, 1X/DAY
     Route: 048
  10. ASPIRIN [Suspect]
     Active Substance: ASPIRIN
     Dosage: 100 MG, QD
  11. PANTOPRAZOLE [Suspect]
     Active Substance: PANTOPRAZOLE
     Dosage: 20 MG, 1X/DAY
     Route: 065
  12. PANTOPRAZOLE [Suspect]
     Active Substance: PANTOPRAZOLE
     Dosage: 20 MG, QD (IV BOLUS)
     Route: 040
  13. PANTOPRAZOLE [Suspect]
     Active Substance: PANTOPRAZOLE
     Dosage: 20 MG, QD (IV BOLUS)
     Route: 040
  14. PANTOPRAZOLE [Suspect]
     Active Substance: PANTOPRAZOLE
     Dosage: 20 MG, QD (IV BOLUS)
     Route: 040
  15. FUROSEMIDE [Suspect]
     Active Substance: FUROSEMIDE
     Dosage: 40 MG, 1X/DAY
     Route: 048
  16. SACUBITRIL\VALSARTAN [Suspect]
     Active Substance: SACUBITRIL\VALSARTAN
     Dosage: 2 DF, 1X/DAY
     Route: 065
  17. IVABRADINE [Suspect]
     Active Substance: IVABRADINE
     Dosage: 10 MG, 1X/DAY
     Route: 065
  18. IVABRADINE [Suspect]
     Active Substance: IVABRADINE
     Dosage: 5 MG, BID
     Route: 066
  19. INSULIN LISPRO [Suspect]
     Active Substance: INSULIN LISPRO
     Dosage: 40 IU, 1X/DAY (((25/75: + 20U 20U / D)
     Route: 065
  20. DAPAGLIFLOZIN [Suspect]
     Active Substance: DAPAGLIFLOZIN
     Route: 048
  21. DAPAGLIFLOZIN [Suspect]
     Active Substance: DAPAGLIFLOZIN
  22. METFORMIN HYDROCHLORIDE [Suspect]
     Active Substance: METFORMIN HYDROCHLORIDE
     Dosage: 1 DF, 2X/DAY
     Route: 065
  23. CARVEDILOL [Suspect]
     Active Substance: CARVEDILOL
     Dosage: 12.5 MG, BID
     Route: 065

REACTIONS (6)
  - Ischaemic stroke [Recovered/Resolved]
  - Chest pain [Unknown]
  - Disease recurrence [Unknown]
  - Headache [Recovered/Resolved]
  - Radioisotope scan abnormal [Unknown]
  - Blood urea increased [Unknown]
